APPROVED DRUG PRODUCT: NALOXONE HYDROCHLORIDE
Active Ingredient: NALOXONE HYDROCHLORIDE
Strength: 4MG/SPRAY
Dosage Form/Route: SPRAY, METERED;NASAL
Application: A217992 | Product #001
Applicant: AMNEAL PHARMACEUTICALS LLC
Approved: Apr 23, 2024 | RLD: No | RS: No | Type: OTC